FAERS Safety Report 6349793-7 (Version None)
Quarter: 2009Q3

REPORT INFORMATION
  Report Type: 
  Country: None (occurrence: None)
  Receive Date: 20090911
  Receipt Date: 20090901
  Transmission Date: 20100115
  Serious: Yes (Death, Other)
  Sender: FDA-Public Use
  Company Number: JP-SANOFI-SYNTHELABO-A01200907453

PATIENT
  Sex: Male
  Weight: 62.1 kg

DRUGS (12)
  1. AVASTIN [Suspect]
     Indication: RECTAL CANCER
     Dosage: 300 MG
     Route: 041
     Dates: start: 20090608, end: 20090608
  2. FLUOROURACIL [Suspect]
     Indication: RECTAL CANCER
     Dosage: 400 MG IV BOLUS FOLLOWED BY 4000 IV MG VIA CONTINUOUS INFUSION.
     Dates: start: 20090608, end: 20090608
  3. ISOVORIN [Suspect]
     Indication: RECTAL CANCER
     Dosage: 325 MG
     Route: 041
     Dates: start: 20090608, end: 20090608
  4. CYTOTEC [Concomitant]
     Indication: ANALGESIC INTERVENTION SUPPORTIVE THERAPY
     Route: 048
     Dates: start: 20090525, end: 20090619
  5. NOVAMIN [Concomitant]
     Dates: start: 20090525, end: 20090619
  6. LAXOBERON [Concomitant]
     Indication: ADVERSE DRUG REACTION
     Dosage: UNK
     Route: 048
     Dates: start: 20090525, end: 20090619
  7. MAGLAX [Concomitant]
     Indication: ADVERSE DRUG REACTION
     Route: 048
     Dates: start: 20090525, end: 20090619
  8. OXINORM [Concomitant]
     Indication: CANCER PAIN
     Dates: start: 20090525, end: 20090619
  9. OXYCONTIN [Concomitant]
     Indication: CANCER PAIN
     Route: 048
     Dates: start: 20090525, end: 20090619
  10. VOLTAREN [Concomitant]
     Indication: CANCER PAIN
     Route: 048
     Dates: start: 20090514, end: 20090619
  11. ELPLAT [Suspect]
     Indication: RECTAL CANCER
     Dosage: 130 MG
     Route: 041
     Dates: start: 20090608, end: 20090608
  12. NERIPROCT [Concomitant]
     Dosage: UNK
     Dates: start: 20090101

REACTIONS (7)
  - ALTERED STATE OF CONSCIOUSNESS [None]
  - DISSEMINATED INTRAVASCULAR COAGULATION [None]
  - HAEMOGLOBIN DECREASED [None]
  - MULTI-ORGAN FAILURE [None]
  - RENAL FAILURE [None]
  - RESPIRATORY FAILURE [None]
  - TUMOUR LYSIS SYNDROME [None]
